FAERS Safety Report 7206488-5 (Version None)
Quarter: 2010Q4

REPORT INFORMATION
  Report Type: 
  Country: None (occurrence: None)
  Receive Date: 20101221
  Receipt Date: 20101207
  Transmission Date: 20110411
  Serious: Yes (Hospitalization)
  Sender: FDA-Public Use
  Company Number: 020248

PATIENT
  Sex: Male

DRUGS (1)
  1. CIMZIA [Suspect]
     Indication: ARTHRITIS
     Dosage: 1 SINGLE DOSE, SUBCUTANEOUS
     Route: 058
     Dates: start: 20100916, end: 20100916

REACTIONS (21)
  - ASTHENIA [None]
  - BACTERIAL INFECTION [None]
  - BLOOD LACTATE DEHYDROGENASE INCREASED [None]
  - EAR DISORDER [None]
  - EPSTEIN-BARR VIRUS INFECTION [None]
  - ERYTHEMA MULTIFORME [None]
  - GENERAL PHYSICAL CONDITION ABNORMAL [None]
  - HYPERGAMMAGLOBULINAEMIA [None]
  - IMMUNOSUPPRESSION [None]
  - INJECTION SITE ERYTHEMA [None]
  - INJECTION SITE URTICARIA [None]
  - LYMPHADENOPATHY [None]
  - NASAL DISORDER [None]
  - OFF LABEL USE [None]
  - PAIN [None]
  - PHARYNGEAL DISORDER [None]
  - PYREXIA [None]
  - RASH [None]
  - STREPTOCOCCUS TEST POSITIVE [None]
  - TOXIC SKIN ERUPTION [None]
  - VASCULITIS [None]
